FAERS Safety Report 24673370 (Version 1)
Quarter: 2024Q4

REPORT INFORMATION
  Report Type: Report from Study
  Country: PH (occurrence: PH)
  Receive Date: 20241128
  Receipt Date: 20241128
  Transmission Date: 20250114
  Serious: Yes (Hospitalization)
  Sender: SANDOZ
  Company Number: PH-002147023-NVSC2023PH094768

PATIENT
  Age: 47 Year
  Sex: Male
  Weight: 71 kg

DRUGS (26)
  1. BEDAQUILINE [Suspect]
     Active Substance: BEDAQUILINE
     Indication: Tuberculosis
     Dosage: 200 MG
     Route: 048
     Dates: start: 20230529
  2. BEDAQUILINE [Suspect]
     Active Substance: BEDAQUILINE
     Dosage: 200 MG
     Route: 048
     Dates: start: 20230718
  3. BEDAQUILINE [Suspect]
     Active Substance: BEDAQUILINE
     Dosage: NO TREATMENT
     Route: 065
  4. CLOFAZIMINE [Suspect]
     Active Substance: CLOFAZIMINE
     Indication: Tuberculosis
     Dosage: 100 MG
     Route: 048
     Dates: start: 20230529
  5. CLOFAZIMINE [Suspect]
     Active Substance: CLOFAZIMINE
     Dosage: 100 MG
     Route: 048
     Dates: start: 20230718
  6. CLOFAZIMINE [Suspect]
     Active Substance: CLOFAZIMINE
     Dosage: NO TREATMENT
     Route: 065
  7. DELAMANID [Suspect]
     Active Substance: DELAMANID
     Indication: Pulmonary tuberculosis
     Dosage: 300 MG
     Route: 048
     Dates: start: 20230529, end: 20230719
  8. LEVOFLOXACIN [Suspect]
     Active Substance: LEVOFLOXACIN
     Indication: Tuberculosis
     Dosage: 1000 MG
     Route: 048
     Dates: start: 20230529
  9. LEVOFLOXACIN [Suspect]
     Active Substance: LEVOFLOXACIN
     Dosage: 1000 MG
     Route: 048
     Dates: start: 20230718
  10. LEVOFLOXACIN [Suspect]
     Active Substance: LEVOFLOXACIN
     Dosage: NO TREATMENT
     Route: 065
  11. LINEZOLID [Suspect]
     Active Substance: LINEZOLID
     Dosage: 1200 MG
     Route: 048
     Dates: start: 20230529
  12. LINEZOLID [Suspect]
     Active Substance: LINEZOLID
     Dosage: 1200 MG
     Route: 048
     Dates: start: 20230629
  13. LINEZOLID [Suspect]
     Active Substance: LINEZOLID
     Dosage: 600 MG
     Route: 048
     Dates: start: 20230607
  14. LINEZOLID [Suspect]
     Active Substance: LINEZOLID
     Indication: Pulmonary tuberculosis
     Dosage: NO TREATMENT
     Route: 065
  15. ALBUMIN HUMAN [Concomitant]
     Active Substance: ALBUMIN HUMAN
     Indication: Hypokalaemia
     Dosage: UNK
     Route: 065
     Dates: start: 20230502
  16. APIXABAN [Concomitant]
     Active Substance: APIXABAN
     Indication: Product used for unknown indication
     Dosage: 5 MG, BID
     Route: 065
     Dates: start: 20230704
  17. ATORVASTATIN [Concomitant]
     Active Substance: ATORVASTATIN
     Indication: Product used for unknown indication
     Dosage: 20 MG
     Route: 048
     Dates: start: 20230607
  18. BEDAQUILINE [Concomitant]
     Active Substance: BEDAQUILINE
     Indication: Product used for unknown indication
     Dosage: 400 MG, QD
     Route: 065
     Dates: start: 20230420
  19. CLOFAZIMINE [Concomitant]
     Active Substance: CLOFAZIMINE
     Indication: Product used for unknown indication
     Dosage: 100 MG, QD
     Route: 065
     Dates: start: 20230420
  20. ETHAMBUTOL [Concomitant]
     Active Substance: ETHAMBUTOL HYDROCHLORIDE
     Indication: Product used for unknown indication
     Dosage: 1200 MG, QD
     Route: 065
     Dates: start: 20230420
  21. GLICLAZIDE [Concomitant]
     Active Substance: GLICLAZIDE
     Indication: Product used for unknown indication
     Dosage: 60 MG
     Route: 048
     Dates: start: 20230607
  22. INSULIN NOS [Concomitant]
     Active Substance: INSULIN NOS
     Indication: Diabetes mellitus
     Dosage: UNK
     Route: 065
  23. ISONIAZID [Concomitant]
     Active Substance: ISONIAZID
     Indication: Product used for unknown indication
     Dosage: 600 MG, QD
     Route: 065
     Dates: start: 20230420
  24. METFORMIN [Concomitant]
     Active Substance: METFORMIN HYDROCHLORIDE
     Dosage: 500 MG, BID
     Route: 065
     Dates: start: 20230607
  25. METFORMIN [Concomitant]
     Active Substance: METFORMIN HYDROCHLORIDE
     Indication: Product used for unknown indication
     Dosage: 500 MG, TID
     Route: 065
     Dates: start: 20230424
  26. POTASSIUM CHLORIDE [Concomitant]
     Active Substance: POTASSIUM CHLORIDE
     Indication: Hypokalaemia
     Dosage: UNK
     Route: 065

REACTIONS (2)
  - Pneumothorax spontaneous [Recovered/Resolved]
  - Anaemia [Unknown]

NARRATIVE: CASE EVENT DATE: 20230424
